FAERS Safety Report 9467416 (Version 5)
Quarter: 2016Q3

REPORT INFORMATION
  Report Type: Spontaneous
  Country: US (occurrence: US)
  Receive Date: 20130821
  Receipt Date: 20160822
  Transmission Date: 20161109
  Serious: Yes (Other)
  Sender: FDA-Public Use
  Company Number: US-JNJFOC-20130713313

PATIENT
  Age: 60 Year
  Sex: Male
  Weight: 77.11 kg

DRUGS (8)
  1. VITAMIN D3 [Concomitant]
     Active Substance: CHOLECALCIFEROL
     Indication: PRODUCT USED FOR UNKNOWN INDICATION
     Route: 065
  2. MENS ROGAINE EXTRA STRENGTH [Suspect]
     Active Substance: MINOXIDIL
     Indication: ALOPECIA
     Route: 061
     Dates: start: 20130508
  3. LINUM USITATISSIMUM SEED OIL [Concomitant]
     Indication: ROUTINE HEALTH MAINTENANCE
     Route: 065
  4. PREVACID [Concomitant]
     Active Substance: LANSOPRAZOLE
     Indication: HYPERCHLORHYDRIA
     Dosage: DAILY
     Route: 065
  5. CORTICOSTEROIDS, DERMATOLOGICAL PREPARATIONS [Concomitant]
     Active Substance: UNSPECIFIED INGREDIENT
     Indication: PSORIASIS
     Route: 065
  6. GLUCOSAMINE [Concomitant]
     Active Substance: GLUCOSAMINE
     Indication: ARTHROPATHY
     Route: 065
  7. MENS ROGAINE EXTRA STRENGTH [Suspect]
     Active Substance: MINOXIDIL
     Indication: ALOPECIA
     Dosage: STARTED 7 YEARS AGO
     Route: 061
  8. PRILOSEC [Concomitant]
     Active Substance: OMEPRAZOLE MAGNESIUM
     Indication: GASTROOESOPHAGEAL REFLUX DISEASE
     Dosage: 5 YEARS TO PRESENT
     Route: 065

REACTIONS (8)
  - Product physical issue [Unknown]
  - Blindness transient [Recovered/Resolved]
  - Drug ineffective [Unknown]
  - Pain [Recovered/Resolved]
  - Accidental exposure to product [Recovered/Resolved]
  - Erythema [Recovered/Resolved]
  - Lacrimation increased [Recovered/Resolved]
  - Eye irritation [Recovered/Resolved]

NARRATIVE: CASE EVENT DATE: 20130718
